FAERS Safety Report 5409863-4 (Version None)
Quarter: 2007Q3

REPORT INFORMATION
  Report Type: 
  Country: None (occurrence: None)
  Receive Date: 20070809
  Receipt Date: 20070802
  Transmission Date: 20080115
  Serious: Yes (Death, Hospitalization)
  Sender: FDA-Public Use
  Company Number: DK-JNJFOC-20070801180

PATIENT
  Sex: Female
  Weight: 80 kg

DRUGS (1)
  1. NORGESTIMATE AND ETHINYL ESTRADIOL [Suspect]
     Indication: DRUG USE FOR UNKNOWN INDICATION

REACTIONS (4)
  - ADRENAL DISORDER [None]
  - CEREBROVASCULAR ACCIDENT [None]
  - OVARIAN CYST [None]
  - PARATHYROID GLAND ENLARGEMENT [None]
